FAERS Safety Report 23740954 (Version 1)
Quarter: 2024Q2

REPORT INFORMATION
  Report Type: Spontaneous
  Country: US (occurrence: US)
  Receive Date: 20240415
  Receipt Date: 20240415
  Transmission Date: 20240716
  Serious: No
  Sender: FDA-Public Use
  Company Number: US-TEVA-VS-3177065

PATIENT
  Age: 51 Year
  Sex: Female

DRUGS (25)
  1. COPAXONE [Suspect]
     Active Substance: GLATIRAMER ACETATE
     Indication: Multiple sclerosis
     Route: 065
  2. Coenzyme-Q [Concomitant]
  3. VITAMINS [Concomitant]
     Active Substance: VITAMINS
  4. VITAMIN D3 [Concomitant]
     Active Substance: CHOLECALCIFEROL
  5. VITAMIN E [Concomitant]
     Active Substance: .ALPHA.-TOCOPHEROL
  6. BIOTIN [Concomitant]
     Active Substance: BIOTIN
  7. SYNTHROID [Concomitant]
     Active Substance: LEVOTHYROXINE SODIUM
  8. BACLOFEN [Concomitant]
     Active Substance: BACLOFEN
  9. ELIQUIS [Concomitant]
     Active Substance: APIXABAN
  10. METHYLPHENIDATE [Concomitant]
     Active Substance: METHYLPHENIDATE
  11. VENLAFAXINE [Concomitant]
     Active Substance: VENLAFAXINE HYDROCHLORIDE
  12. LEVETIRACETAM [Concomitant]
     Active Substance: LEVETIRACETAM
  13. PROPRANOLOL [Concomitant]
     Active Substance: PROPRANOLOL HYDROCHLORIDE
  14. AVONEX [Concomitant]
     Active Substance: INTERFERON BETA-1A
  15. TECFIDERA [Concomitant]
     Active Substance: DIMETHYL FUMARATE
  16. AUBAGIO [Concomitant]
     Active Substance: TERIFLUNOMIDE
  17. RIZATRIPTAN [Concomitant]
     Active Substance: RIZATRIPTAN
  18. BUSPAR [Concomitant]
     Active Substance: BUSPIRONE HYDROCHLORIDE
  19. CANNABIDIOL\HERBALS [Concomitant]
     Active Substance: CANNABIDIOL\HERBALS
  20. LYSINE [Concomitant]
     Active Substance: LYSINE
  21. MYRBETRIQ [Concomitant]
     Active Substance: MIRABEGRON
  22. VITAMIN B12 [Concomitant]
     Active Substance: CYANOCOBALAMIN
  23. MAXALT-MLT [Concomitant]
     Active Substance: RIZATRIPTAN BENZOATE
  24. PROBIOTICS NOS [Concomitant]
     Active Substance: PROBIOTICS NOS
  25. MIRTAZAPINE [Concomitant]
     Active Substance: MIRTAZAPINE

REACTIONS (2)
  - Flushing [Unknown]
  - Drug intolerance [Unknown]
